FAERS Safety Report 19403436 (Version 3)
Quarter: 2021Q3

REPORT INFORMATION
  Report Type: Spontaneous
  Country: JP (occurrence: JP)
  Receive Date: 20210610
  Receipt Date: 20210806
  Transmission Date: 20211014
  Serious: Yes (Death, Hospitalization, Other)
  Sender: FDA-Public Use
  Company Number: NVSJ2021JP008751

PATIENT
  Age: 88 Year
  Sex: Male
  Weight: 49.4 kg

DRUGS (8)
  1. ENTRESTO [Suspect]
     Active Substance: SACUBITRIL\VALSARTAN
     Dosage: 100 MG, BID
     Route: 048
     Dates: start: 20201029
  2. ELIQUIS [Concomitant]
     Active Substance: APIXABAN
     Indication: EMBOLISM VENOUS
     Dosage: 2.5 MG, BID
     Route: 048
     Dates: start: 20180221
  3. SAMSCA [Concomitant]
     Active Substance: TOLVAPTAN
     Indication: CARDIAC FAILURE
     Dosage: 15 MG, QD
     Route: 048
     Dates: start: 20180212
  4. FUROSEMIDE. [Concomitant]
     Active Substance: FUROSEMIDE
     Indication: CARDIAC FAILURE CONGESTIVE
     Dosage: 40 MG, QD
     Route: 048
     Dates: start: 20140401
  5. FEBURIC [Concomitant]
     Active Substance: FEBUXOSTAT
     Indication: HYPERURICAEMIA
     Dosage: 20 MG, QD
     Route: 048
     Dates: start: 20140401
  6. ENTRESTO [Suspect]
     Active Substance: SACUBITRIL\VALSARTAN
     Indication: CARDIAC FAILURE CONGESTIVE
     Dosage: 50 MG, BID
     Route: 048
     Dates: start: 20201022, end: 20201028
  7. ENTRESTO [Suspect]
     Active Substance: SACUBITRIL\VALSARTAN
     Dosage: 200 MG, BID
     Route: 048
     Dates: start: 20210506
  8. FORXIGA [Concomitant]
     Active Substance: DAPAGLIFLOZIN
     Indication: TYPE 2 DIABETES MELLITUS
     Dosage: 10 MG, QD
     Route: 048
     Dates: start: 20210421

REACTIONS (15)
  - Chest discomfort [Fatal]
  - Dyspnoea [Fatal]
  - Rales [Fatal]
  - Renal impairment [Recovered/Resolved]
  - Cardiac failure congestive [Fatal]
  - Decreased appetite [Fatal]
  - Malaise [Fatal]
  - Blood creatinine increased [Recovered/Resolved]
  - Pleural effusion [Fatal]
  - Urine output decreased [Fatal]
  - Drug ineffective [Unknown]
  - Heart rate irregular [Fatal]
  - Oxygen saturation decreased [Fatal]
  - Oedema peripheral [Fatal]
  - Generalised oedema [Fatal]

NARRATIVE: CASE EVENT DATE: 20201026
